FAERS Safety Report 8286369-9 (Version None)
Quarter: 2012Q2

REPORT INFORMATION
  Report Type: 
  Country: None (occurrence: None)
  Receive Date: 20120411
  Receipt Date: 20120411
  Transmission Date: 20120825
  Serious: No
  Sender: FDA-Public Use
  Company Number: None

PATIENT
  Age: 67 Year
  Sex: Female
  Weight: 55.3388 kg

DRUGS (3)
  1. LEVOFLOXACIN [Suspect]
     Indication: PAIN IN JAW
     Dosage: ONE TABLET ONCE DAILY BY MOUTH
     Route: 048
     Dates: start: 20120323
  2. LEVOFLOXACIN [Suspect]
     Indication: PAIN IN JAW
     Dosage: ONE TABLET ONCE DAILY BY MOUTH
     Route: 048
     Dates: start: 20120325
  3. LEVOFLOXACIN [Suspect]
     Indication: PAIN IN JAW
     Dosage: ONE TABLET ONCE DAILY BY MOUTH
     Route: 048
     Dates: start: 20120324

REACTIONS (13)
  - CONDITION AGGRAVATED [None]
  - DYSARTHRIA [None]
  - SOMNOLENCE [None]
  - COUGH [None]
  - AGITATION [None]
  - DIZZINESS [None]
  - TENDONITIS [None]
  - HEADACHE [None]
  - CHILLS [None]
  - ASTHENIA [None]
  - BACK PAIN [None]
  - MUSCULOSKELETAL STIFFNESS [None]
  - VISUAL IMPAIRMENT [None]
